FAERS Safety Report 12373127 (Version 1)
Quarter: 2016Q2

REPORT INFORMATION
  Report Type: Report from Study
  Country: US (occurrence: US)
  Receive Date: 20160516
  Receipt Date: 20160516
  Transmission Date: 20160815
  Serious: Yes (Other)
  Sender: FDA-Public Use
  Company Number: US-MALLINCKRODT-T201600535

PATIENT
  Age: 71 Year
  Sex: Male
  Weight: 68 kg

DRUGS (10)
  1. LASIX [Concomitant]
     Active Substance: FUROSEMIDE
     Dosage: BID
  2. LISINOPRIL. [Concomitant]
     Active Substance: LISINOPRIL
     Dosage: 20MG; BID
  3. LASIX [Concomitant]
     Active Substance: FUROSEMIDE
     Dosage: 2 TIMES
  4. REPOSITORY CORTICOTROPIN INJECTION [Suspect]
     Active Substance: CORTICOTROPIN
     Indication: GLOMERULONEPHRITIS MEMBRANOUS
     Dosage: 80 UNITS TWICE WKLY
     Route: 030
     Dates: start: 20160213, end: 20160227
  5. ALLOPURINOL. [Concomitant]
     Active Substance: ALLOPURINOL
  6. GABAPENTIN. [Concomitant]
     Active Substance: GABAPENTIN
     Dosage: TID
  7. COLCRYS [Concomitant]
     Active Substance: COLCHICINE
  8. LASIX [Concomitant]
     Active Substance: FUROSEMIDE
     Dosage: 40 MG; ^2 BID^
  9. LISINOPRIL. [Concomitant]
     Active Substance: LISINOPRIL
     Dosage: 20 MG
  10. REPOSITORY CORTICOTROPIN INJECTION [Suspect]
     Active Substance: CORTICOTROPIN
     Dosage: 80 UNITS TWO TIMES A WEEK
     Route: 030

REACTIONS (17)
  - Blood pressure increased [Recovered/Resolved]
  - Lacrimation increased [Recovering/Resolving]
  - Pollakiuria [Not Recovered/Not Resolved]
  - Insomnia [Recovering/Resolving]
  - Swelling [Recovered/Resolved]
  - Cushing^s syndrome [Not Recovered/Not Resolved]
  - Blood creatine increased [Not Recovered/Not Resolved]
  - Eructation [Recovered/Resolved]
  - Hiccups [Recovered/Resolved]
  - Dehydration [Recovered/Resolved]
  - Visual impairment [Not Recovered/Not Resolved]
  - Psychomotor hyperactivity [Recovering/Resolving]
  - Feeling abnormal [Not Recovered/Not Resolved]
  - Fluid retention [Recovered/Resolved]
  - Dysphonia [Not Recovered/Not Resolved]
  - Fatigue [Not Recovered/Not Resolved]
  - Cushingoid [Not Recovered/Not Resolved]

NARRATIVE: CASE EVENT DATE: 201602
